FAERS Safety Report 20900247 (Version 1)
Quarter: 2022Q2

REPORT INFORMATION
  Report Type: Spontaneous
  Country: US (occurrence: US)
  Receive Date: 20220601
  Receipt Date: 20220601
  Transmission Date: 20220721
  Serious: No
  Sender: FDA-Public Use
  Company Number: US-BRISTOL-MYERS SQUIBB COMPANY-2022-036907

PATIENT
  Age: 81 Year
  Sex: Female

DRUGS (3)
  1. POMALYST [Suspect]
     Active Substance: POMALIDOMIDE
     Indication: Product used for unknown indication
     Dosage: DOSE: 2 MILLIGRAM, FREQ: DAILY
     Route: 048
     Dates: start: 201710
  2. POMALYST [Suspect]
     Active Substance: POMALIDOMIDE
     Dosage: DOSE: 2 MILLIGRAM
     Route: 048
  3. CLARITIN [Suspect]
     Active Substance: LORATADINE
     Indication: Product used for unknown indication

REACTIONS (2)
  - Peripheral swelling [Unknown]
  - COVID-19 [Unknown]

NARRATIVE: CASE EVENT DATE: 20220509
